FAERS Safety Report 4668004-1 (Version None)
Quarter: 2005Q2

REPORT INFORMATION
  Report Type: 
  Country: None (occurrence: None)
  Receive Date: 20050520
  Receipt Date: 20050401
  Transmission Date: 20051028
  Serious: Yes (Other)
  Sender: FDA-Public Use
  Company Number: CH-ABBOTT-05P-151-0296503-00

PATIENT
  Age: 76 Year
  Sex: Female

DRUGS (2)
  1. HUMIRA [Suspect]
     Indication: RHEUMATOID ARTHRITIS
     Route: 058
     Dates: start: 20040801
  2. HUMIRA [Suspect]
     Route: 058

REACTIONS (3)
  - ARTHRITIS [None]
  - ORTHOPEDIC PROCEDURE [None]
  - POSTOPERATIVE INFECTION [None]
